FAERS Safety Report 26193899 (Version 1)
Quarter: 2025Q4

REPORT INFORMATION
  Report Type: Report from Study
  Country: CA (occurrence: CA)
  Receive Date: 20251224
  Receipt Date: 20251224
  Transmission Date: 20260118
  Serious: Yes (Hospitalization)
  Sender: ABBVIE
  Company Number: CA-ABBVIE-6557958

PATIENT
  Age: 53 Year
  Sex: Male
  Weight: 92 kg

DRUGS (4)
  1. RINVOQ [Suspect]
     Active Substance: UPADACITINIB
     Indication: Crohn^s disease
     Route: 048
     Dates: start: 202507, end: 202510
  2. RINVOQ [Suspect]
     Active Substance: UPADACITINIB
     Indication: Crohn^s disease
     Dosage: EXTENDED RELEASE TABLET
     Route: 048
     Dates: start: 2025
  3. ONDANSETRON [Concomitant]
     Active Substance: ONDANSETRON
     Indication: Product used for unknown indication
     Dosage: TIME INTERVAL: AS NECESSARY: Q 8 HOURS
     Route: 048
  4. PANTOPRAZOLE MAGNESIUM [Concomitant]
     Active Substance: PANTOPRAZOLE MAGNESIUM
     Indication: Product used for unknown indication
     Route: 048

REACTIONS (5)
  - Inflammatory bowel disease [Unknown]
  - Diarrhoea haemorrhagic [Recovered/Resolved]
  - Sleep disorder [Unknown]
  - Gastrointestinal scarring [Unknown]
  - Gastrointestinal tract adenoma [Unknown]

NARRATIVE: CASE EVENT DATE: 20250101
